FAERS Safety Report 14279079 (Version 2)
Quarter: 2018Q2

REPORT INFORMATION
  Report Type: Spontaneous
  Country: US (occurrence: US)
  Receive Date: 20171213
  Receipt Date: 20180607
  Transmission Date: 20180711
  Serious: No
  Sender: FDA-Public Use
  Company Number: US-ASTRAZENECA-2017SF26085

PATIENT
  Age: 30452 Day
  Sex: Female
  Weight: 59 kg

DRUGS (1)
  1. TUDORZA PRESSAIR [Suspect]
     Active Substance: ACLIDINIUM BROMIDE
     Indication: CHRONIC OBSTRUCTIVE PULMONARY DISEASE
     Dosage: 400MCG INHALER, 1 PUFF DAILY
     Route: 055
     Dates: start: 20171202

REACTIONS (4)
  - Device issue [Unknown]
  - Dysphonia [Not Recovered/Not Resolved]
  - Intentional device misuse [Unknown]
  - Off label use [Not Recovered/Not Resolved]

NARRATIVE: CASE EVENT DATE: 20171202
